FAERS Safety Report 8882560 (Version 1)
Quarter: 2012Q4

REPORT INFORMATION
  Report Type: 
  Country: TW (occurrence: TW)
  Receive Date: 20121102
  Receipt Date: 20121102
  Transmission Date: 20130627
  Serious: Yes (Other)
  Sender: FDA-Public Use
  Company Number: TW-SANOFI-AVENTIS-2012SA078808

PATIENT
  Age: 56 Year
  Sex: Female

DRUGS (7)
  1. RIFAMPICIN [Suspect]
     Indication: PULMONARY TUBERCULOSIS
     Route: 065
     Dates: start: 2011
  2. ZOTEPINE [Interacting]
     Indication: SCHIZOPHRENIA
     Route: 065
  3. ESTAZOLAM [Concomitant]
     Indication: SCHIZOPHRENIA
  4. AMLODIPINE [Concomitant]
     Indication: HYPERTENSIVE
  5. PROPRANOLOL [Concomitant]
     Indication: HYPERTENSIVE
  6. ISONIAZID [Concomitant]
     Indication: PULMONARY TUBERCULOSIS
     Dates: start: 2011
  7. PYRAZINAMIDE [Concomitant]
     Indication: PULMONARY TUBERCULOSIS
     Dates: start: 2011

REACTIONS (7)
  - Psychotic disorder [Recovering/Resolving]
  - Drug effect decreased [Recovering/Resolving]
  - Drug interaction [Unknown]
  - Persecutory delusion [Recovering/Resolving]
  - Delusion of reference [Recovering/Resolving]
  - Hallucination, auditory [Recovering/Resolving]
  - Aggression [Recovering/Resolving]
